FAERS Safety Report 8323104-X (Version None)
Quarter: 2012Q2

REPORT INFORMATION
  Report Type: 
  Country: None (occurrence: None)
  Receive Date: 20120430
  Receipt Date: 20120424
  Transmission Date: 20120825
  Serious: Yes (Other)
  Sender: FDA-Public Use
  Company Number: DE-PFIZER INC-2012101766

PATIENT
  Age: 70 Year
  Sex: Male

DRUGS (2)
  1. ATORVASTATIN CALCIUM [Suspect]
     Dosage: 40 MG, UNK
  2. ATORVASTATIN CALCIUM [Suspect]
     Dosage: 40 MG, UNK

REACTIONS (5)
  - DRUG INTOLERANCE [None]
  - MYALGIA [None]
  - FATIGUE [None]
  - ANGINA PECTORIS [None]
  - LIVER INJURY [None]
